FAERS Safety Report 6366211-3 (Version None)
Quarter: 2009Q3

REPORT INFORMATION
  Report Type: 
  Country: None (occurrence: None)
  Receive Date: 20090915
  Receipt Date: 20090904
  Transmission Date: 20100115
  Serious: Yes (Life-Threatening, Hospitalization, Other)
  Sender: FDA-Public Use
  Company Number: 2009009125

PATIENT
  Age: 69 Year
  Sex: Male

DRUGS (2)
  1. TREANDA [Suspect]
     Indication: CHRONIC LYMPHOCYTIC LEUKAEMIA
     Dosage: 90 MG/M2; INTRAVENOUS DRIP
     Route: 042
     Dates: start: 20090707
  2. SEPTRA [Concomitant]

REACTIONS (5)
  - BONE MARROW DISORDER [None]
  - HYPERHIDROSIS [None]
  - LYMPHADENOPATHY [None]
  - PANCYTOPENIA [None]
  - SPLENOMEGALY [None]
